FAERS Safety Report 21967431 (Version 6)
Quarter: 2024Q1

REPORT INFORMATION
  Report Type: Spontaneous
  Country: CA (occurrence: CA)
  Receive Date: 20230208
  Receipt Date: 20240129
  Transmission Date: 20240410
  Serious: Yes (Other)
  Sender: FDA-Public Use
  Company Number: CA-PFIZER INC-202200359077

PATIENT
  Age: 63 Year
  Sex: Male
  Weight: 89 kg

DRUGS (5)
  1. INLYTA [Suspect]
     Active Substance: AXITINIB
     Indication: Renal cell carcinoma stage IV
     Dosage: 3 MG, 2X/DAY
  2. INLYTA [Suspect]
     Active Substance: AXITINIB
     Dosage: 3 MG, 2X/DAY (3 TABLET, QTY 60 DAYS)
     Route: 048
     Dates: start: 20220311
  3. INLYTA [Suspect]
     Active Substance: AXITINIB
     Dosage: 2 MG, 2X/DAY (SUPPLY: 90 DAY)
     Route: 048
  4. KEYTRUDA [Concomitant]
     Active Substance: PEMBROLIZUMAB
     Dosage: UNK
  5. PEMBROLIZUMAB [Concomitant]
     Active Substance: PEMBROLIZUMAB
     Dosage: UNK, EVERY 21 DAYS

REACTIONS (3)
  - Weight increased [Unknown]
  - Neoplasm progression [Unknown]
  - Body height decreased [Unknown]

NARRATIVE: CASE EVENT DATE: 20230101
